FAERS Safety Report 11726974 (Version 2)
Quarter: 2016Q4

REPORT INFORMATION
  Report Type: Spontaneous
  Country: PL (occurrence: PL)
  Receive Date: 20151112
  Receipt Date: 20161128
  Transmission Date: 20170206
  Serious: Yes (Disabling)
  Sender: FDA-Public Use
  Company Number: PL-ASTELLAS-2015US042074

PATIENT
  Age: 63 Year
  Sex: Female

DRUGS (2)
  1. TARCEVA [Suspect]
     Active Substance: ERLOTINIB HYDROCHLORIDE
     Indication: NON-SMALL CELL LUNG CANCER
  2. TARCEVA [Suspect]
     Active Substance: ERLOTINIB HYDROCHLORIDE
     Indication: LUNG ADENOCARCINOMA
     Dosage: UNK, UNKNOWN FREQ.
     Route: 065
     Dates: start: 201402

REACTIONS (9)
  - Paronychia [Unknown]
  - Trichomegaly [Unknown]
  - Pyogenic granuloma [Recovering/Resolving]
  - Alopecia scarring [Recovering/Resolving]
  - Rash pustular [Recovering/Resolving]
  - Pruritus [Unknown]
  - Scab [Recovering/Resolving]
  - Dermatitis acneiform [Recovering/Resolving]
  - Dry skin [Unknown]
